FAERS Safety Report 5188514-0 (Version None)
Quarter: 2006Q4

REPORT INFORMATION
  Report Type: 
  Country: None (occurrence: None)
  Receive Date: 20061221
  Receipt Date: 20061218
  Transmission Date: 20070319
  Serious: Yes (Other)
  Sender: FDA-Public Use
  Company Number: US-JNJFOC-20061205242

PATIENT
  Age: 49 Year
  Sex: Male

DRUGS (1)
  1. MOTRIN [Suspect]
     Indication: BACK DISORDER

REACTIONS (4)
  - EYE MOVEMENT DISORDER [None]
  - OPTIC ATROPHY [None]
  - PUPILLARY LIGHT REFLEX TESTS ABNORMAL [None]
  - VISUAL ACUITY REDUCED [None]
